FAERS Safety Report 17469821 (Version 1)
Quarter: 2020Q1

REPORT INFORMATION
  Report Type: Spontaneous
  Country: GB (occurrence: GB)
  Receive Date: 20200227
  Receipt Date: 20200227
  Transmission Date: 20200409
  Serious: Yes (Hospitalization)
  Sender: FDA-Public Use
  Company Number: GB-MYLANLABS-2020M1020982

PATIENT
  Age: 73 Year
  Sex: Female

DRUGS (12)
  1. ISOSORBIDE MONONITRATE. [Concomitant]
     Active Substance: ISOSORBIDE MONONITRATE
     Dosage: 90 MILLIGRAM, QD/IN THE MORNING
     Route: 048
  2. GLYCERYL TRINITRATE [Concomitant]
     Active Substance: NITROGLYCERIN
     Dosage: 1-2 SPRAYS WHEN REQUIRED
     Route: 060
  3. OMEPRAZOLE. [Suspect]
     Active Substance: OMEPRAZOLE
     Indication: PRODUCT USED FOR UNKNOWN INDICATION
     Dosage: 40 MILLIGRAM, QD
     Route: 048
     Dates: end: 20191221
  4. NICARDIPINE [Concomitant]
     Active Substance: NICARDIPINE
     Dosage: 60 MILLIGRAM, QD
     Route: 048
  5. SIMVASTATIN. [Concomitant]
     Active Substance: SIMVASTATIN
     Dosage: 40 MILLIGRAM, QD/ AT NIGHT
     Route: 048
  6. ACETYLSALICYLIC ACID [Concomitant]
     Active Substance: ASPIRIN
     Dosage: 75 MILLIGRAM, QD/IN THE MORNING
     Route: 048
  7. SOTALOL. [Concomitant]
     Active Substance: SOTALOL
     Dosage: 80 MILLIGRAM, QD
     Route: 048
  8. PARACETAMOL [Concomitant]
     Active Substance: ACETAMINOPHEN
     Dosage: 1-2 FOUR TIMES DAILY WHEN REQUIRED
     Route: 048
  9. HYPROMELLOSE [Concomitant]
     Active Substance: HYPROMELLOSES
     Dosage: BOTH EYES WHEN REQUIRED
     Route: 050
  10. HYDROXOCOBALAMIN [Concomitant]
     Active Substance: HYDROXOCOBALAMIN
     Dosage: 1 MILLIGRAM, Q3MONTHS
     Route: 030
  11. CO-AMILOFRUSE [Suspect]
     Active Substance: AMILORIDE\FUROSEMIDE
     Indication: PRODUCT USED FOR UNKNOWN INDICATION
     Dosage: 1 DOSAGE FORM, QD/ EVERY MORNING
     Route: 048
     Dates: end: 20191221
  12. AMOXICILLIN. [Concomitant]
     Active Substance: AMOXICILLIN
     Dosage: 1500 MILLIGRAM, QD
     Route: 048
     Dates: start: 20191218

REACTIONS (4)
  - Hyponatraemia [Recovering/Resolving]
  - Asthenia [Unknown]
  - Decreased appetite [Unknown]
  - Lethargy [Unknown]

NARRATIVE: CASE EVENT DATE: 20191221
